FAERS Safety Report 25615417 (Version 2)
Quarter: 2025Q3

REPORT INFORMATION
  Report Type: Spontaneous
  Country: US (occurrence: US)
  Receive Date: 20250729
  Receipt Date: 20250814
  Transmission Date: 20251021
  Serious: No
  Sender: ABBVIE
  Company Number: US-ABBVIE-6389990

PATIENT
  Sex: Female

DRUGS (1)
  1. RINVOQ [Suspect]
     Active Substance: UPADACITINIB
     Indication: Dermatitis atopic
     Route: 048

REACTIONS (1)
  - Product taste abnormal [Not Recovered/Not Resolved]
